FAERS Safety Report 10254872 (Version 1)
Quarter: 2014Q2

REPORT INFORMATION
  Report Type: Spontaneous
  Country: GB (occurrence: GB)
  Receive Date: 20140624
  Receipt Date: 20140624
  Transmission Date: 20141212
  Serious: Yes (Other)
  Sender: FDA-Public Use
  Company Number: GB-MYLANLABS-2014S1013901

PATIENT
  Age: 29 Year
  Sex: Male
  Weight: 82.6 kg

DRUGS (6)
  1. DOXYCYCLINE [Suspect]
     Dosage: 1 - 2 TABLETS
     Route: 048
     Dates: start: 20140602
  2. CO-AMOXICLAV [Concomitant]
     Dates: start: 20140602
  3. DICLOFENAC SODIUM [Concomitant]
     Dates: start: 20140219, end: 20140319
  4. HUMULIN [Concomitant]
     Dates: start: 20140313, end: 20140410
  5. LANSOPRAZOLE [Concomitant]
     Dates: start: 20140311, end: 20140408
  6. SALBUTAMOL [Concomitant]
     Dates: start: 20140430, end: 20140528

REACTIONS (1)
  - Tinnitus [Not Recovered/Not Resolved]
